FAERS Safety Report 18695226 (Version 1)
Quarter: 2021Q1

REPORT INFORMATION
  Report Type: Spontaneous
  Country: US (occurrence: US)
  Receive Date: 20210103
  Receipt Date: 20210103
  Transmission Date: 20210419
  Serious: No
  Sender: FDA-Public Use
  Company Number: None

PATIENT
  Age: 15 Year
  Sex: Female
  Weight: 50.4 kg

DRUGS (2)
  1. MELATONIN [Concomitant]
     Active Substance: MELATONIN
  2. CARMEX [Suspect]
     Active Substance: CAMPHOR\MENTHOL\PHENOL\POTASSIUM ALUM\SALICYLIC ACID
     Indication: CHAPPED LIPS
     Route: 061
     Dates: start: 20201230, end: 20210101

REACTIONS (3)
  - Secretion discharge [None]
  - Lip swelling [None]
  - Lip disorder [None]

NARRATIVE: CASE EVENT DATE: 20201230
